FAERS Safety Report 4443254-8 (Version None)
Quarter: 2004Q3

REPORT INFORMATION
  Report Type: 
  Country: None (occurrence: None)
  Receive Date: 20040903
  Receipt Date: 20040903
  Transmission Date: 20050211
  Serious: Yes (Hospitalization)
  Sender: FDA-Public Use
  Company Number: None

PATIENT
  Age: 73 Year
  Sex: Female
  Weight: 89.4 kg

DRUGS (12)
  1. VIOXX [Suspect]
     Indication: PODAGRA
     Dosage: 50 MG   DAILY   ORAL
     Route: 048
     Dates: start: 20040406, end: 20040410
  2. DILTIAZEM [Concomitant]
  3. ISOSORBIDE [Concomitant]
  4. WARFARIN SODIUM [Concomitant]
  5. DIGOXIN [Concomitant]
  6. DUONEB [Concomitant]
  7. PRIMIDONE [Concomitant]
  8. PREDNISONE [Concomitant]
  9. PANTOPRAZOLE [Concomitant]
  10. SENNA/DSS [Concomitant]
  11. OXYCODONE HCL [Concomitant]
  12. LINEZOLID [Concomitant]

REACTIONS (5)
  - ACUTE RESPIRATORY FAILURE [None]
  - DYSPNOEA [None]
  - HYPOXIA [None]
  - LUNG INFILTRATION [None]
  - PULMONARY OEDEMA [None]
